FAERS Safety Report 5319912-X (Version None)
Quarter: 2007Q2

REPORT INFORMATION
  Report Type: 
  Country: None (occurrence: None)
  Receive Date: 20070503
  Receipt Date: 20070420
  Transmission Date: 20071010
  Serious: Yes (Hospitalization)
  Sender: FDA-Public Use
  Company Number: US-CVT-070096

PATIENT
  Age: 64 Year
  Sex: Female

DRUGS (11)
  1. RANEXA [Suspect]
     Indication: ANGINA PECTORIS
     Dosage: SEE IMAGE
     Route: 048
     Dates: start: 20070101
  2. RANEXA [Suspect]
     Indication: ANGINA PECTORIS
     Dosage: SEE IMAGE
     Route: 048
     Dates: start: 20070101
  3. RANEXA [Suspect]
     Indication: ANGINA PECTORIS
     Dosage: SEE IMAGE
     Route: 048
     Dates: start: 20070101
  4. LISINOPRIL /00894001/ (LISINOPRIL) [Concomitant]
  5. ASPIRIN [Concomitant]
  6. INSULIN /00030501/ (INSULIN) [Concomitant]
  7. ALLEGRA-D /01367401/ (FEXOFENADINE HYDROCHLORIDE, PSEUDOEPHEDRINE HYDR [Concomitant]
  8. TOPROL-XL [Concomitant]
  9. NITRO-SPRAY (ISOSORBIDE DINITRATE) [Concomitant]
  10. VYTORIN [Concomitant]
  11. AMITRIPTYLINE /00002201/ (AMITRIPTYLINE) [Concomitant]

REACTIONS (3)
  - ALOPECIA [None]
  - CHEST PAIN [None]
  - DYSPNOEA [None]
